FAERS Safety Report 9288061 (Version 1)
Quarter: 2013Q2

REPORT INFORMATION
  Report Type: Spontaneous
  Country: GB (occurrence: None)
  Receive Date: 20130509
  Receipt Date: 20130509
  Transmission Date: 20140414
  Serious: Yes (Other)
  Sender: FDA-Public Use
  Company Number: AUR-APL-2013-03840

PATIENT
  Sex: Male

DRUGS (2)
  1. FLUOXETINE (FLUOXETINE) [Suspect]
     Indication: PRODUCT USED FOR UNKNOWN INDICATION
  2. CODEINE [Suspect]
     Indication: PRODUCT USED FOR UNKNOWN INDICATION

REACTIONS (27)
  - Joint dislocation [None]
  - Grand mal convulsion [None]
  - Postictal state [None]
  - Somnolence [None]
  - Tachycardia [None]
  - Blood pressure diastolic increased [None]
  - Blood creatine phosphokinase increased [None]
  - Leukocytosis [None]
  - Mutism [None]
  - Confusional state [None]
  - Encephalopathy [None]
  - Depressed mood [None]
  - Overdose [None]
  - Pyrexia [None]
  - Tremor [None]
  - Hyperreflexia [None]
  - Serotonin syndrome [None]
  - C-reactive protein increased [None]
  - Agitation [None]
  - Thinking abnormal [None]
  - Spinal compression fracture [None]
  - Electrocardiogram abnormal [None]
  - Myoclonus [None]
  - Opisthotonus [None]
  - Autonomic nervous system imbalance [None]
  - Pneumonia [None]
  - Pleural effusion [None]
